FAERS Safety Report 19846254 (Version 1)
Quarter: 2021Q3

REPORT INFORMATION
  Report Type: Report from Study
  Country: US (occurrence: US)
  Receive Date: 20210917
  Receipt Date: 20210917
  Transmission Date: 20211014
  Serious: No
  Sender: FDA-Public Use
  Company Number: US-IPSEN BIOPHARMACEUTICALS, INC.-2021-22377

PATIENT
  Age: 55 Year
  Sex: Female

DRUGS (1)
  1. SOMATULINE DEPOT [Suspect]
     Active Substance: LANREOTIDE ACETATE
     Indication: CARCINOID TUMOUR
     Dosage: 120 MG EVERY 21 DAYS IN BUTTOCKS
     Route: 058
     Dates: start: 202007

REACTIONS (4)
  - Off label use [Unknown]
  - Injection site pain [Unknown]
  - Fatigue [Unknown]
  - Injection site mass [Unknown]

NARRATIVE: CASE EVENT DATE: 2020
